FAERS Safety Report 9898442 (Version 3)
Quarter: 2014Q3

REPORT INFORMATION
  Report Type: Spontaneous
  Country: US (occurrence: US)
  Receive Date: 20140214
  Receipt Date: 20140707
  Transmission Date: 20150326
  Serious: Yes (Hospitalization)
  Sender: FDA-Public Use
  Company Number: US-PFIZER INC-2014038751

PATIENT
  Age: 48 Year
  Sex: Male
  Weight: 62.7 kg

DRUGS (5)
  1. CYMBALTA [Concomitant]
     Active Substance: DULOXETINE HYDROCHLORIDE
     Dosage: 60 MG, DAILY
  2. ERAXIS [Suspect]
     Active Substance: ANIDULAFUNGIN
     Indication: URINARY TRACT INFECTION FUNGAL
     Dosage: 100 MG, DAILY
     Dates: start: 20130910, end: 20130919
  3. BACLOFEN. [Interacting]
     Active Substance: BACLOFEN
     Indication: CONVULSION
     Dosage: 20 MG, 4X/DAY (EVERY SIX HOURS)
  4. KEPPRA [Interacting]
     Active Substance: LEVETIRACETAM
     Indication: CONVULSION
     Dosage: 500 MG, 2X/DAY
  5. XANAX [Concomitant]
     Active Substance: ALPRAZOLAM
     Dosage: 2 MG, AS NEEDED

REACTIONS (2)
  - Drug interaction [Recovered/Resolved]
  - Convulsion [Recovered/Resolved]

NARRATIVE: CASE EVENT DATE: 201309
